FAERS Safety Report 4359951-9 (Version None)
Quarter: 2004Q2

REPORT INFORMATION
  Report Type: 
  Country: None (occurrence: None)
  Receive Date: 20040512
  Receipt Date: 20040506
  Transmission Date: 20050107
  Serious: Yes (Death)
  Sender: FDA-Public Use
  Company Number: 2004US000516

PATIENT
  Age: 25 Year

DRUGS (3)
  1. PROGRAF [Suspect]
     Indication: BONE MARROW TRANSPLANT
  2. PROGRAF [Suspect]
     Indication: GRAFT VERSUS HOST DISEASE
  3. METHOTREXATE [Concomitant]

REACTIONS (1)
  - DISEASE PROGRESSION [None]
